FAERS Safety Report 4441911-0 (Version None)
Quarter: 2004Q3

REPORT INFORMATION
  Report Type: 
  Country: None (occurrence: None)
  Receive Date: 20040903
  Receipt Date: 20040603
  Transmission Date: 20050211
  Serious: Yes (Other)
  Sender: FDA-Public Use
  Company Number: 2004UW11535

PATIENT
  Age: 72 Year
  Sex: Female
  Weight: 64.4108 kg

DRUGS (5)
  1. CRESTOR [Suspect]
     Indication: BLOOD CHOLESTEROL INCREASED
     Dosage: 10 MG PO
     Route: 048
     Dates: start: 20040501
  2. CLONIDINE HCL [Concomitant]
  3. LEVOXYL [Concomitant]
  4. ALDACTONE [Concomitant]
  5. OXYGEN [Concomitant]

REACTIONS (3)
  - CONFUSIONAL STATE [None]
  - EAR DISORDER [None]
  - THINKING ABNORMAL [None]
